FAERS Safety Report 5439925-7 (Version None)
Quarter: 2007Q3

REPORT INFORMATION
  Report Type: 
  Country: None (occurrence: None)
  Receive Date: 20070831
  Receipt Date: 20070822
  Transmission Date: 20080115
  Serious: Yes (Disabling)
  Sender: FDA-Public Use
  Company Number: DE-ABBOTT-07P-062-0378819-00

PATIENT
  Sex: Male

DRUGS (1)
  1. ERGENYL CHRONOSPHERE TABLETS [Suspect]
     Indication: EPILEPSY
     Route: 048
     Dates: start: 20060807, end: 20070311

REACTIONS (5)
  - DISORIENTATION [None]
  - FATIGUE [None]
  - LISTLESS [None]
  - PERSONALITY CHANGE [None]
  - PSYCHIATRIC SYMPTOM [None]
